FAERS Safety Report 9169246 (Version 5)
Quarter: 2014Q1

REPORT INFORMATION
  Report Type: Spontaneous
  Country: US (occurrence: US)
  Receive Date: 20130318
  Receipt Date: 20140325
  Transmission Date: 20141002
  Serious: Yes (Hospitalization)
  Sender: FDA-Public Use
  Company Number: US-B.I. PHARMACEUTICALS,INC./RIDGEFIELD-2013-BI-06652BP

PATIENT
  Age: 79 Year
  Sex: Female
  Weight: 58.97 kg

DRUGS (11)
  1. PRADAXA [Suspect]
     Indication: ATRIAL FIBRILLATION
     Dosage: 300 MG
     Route: 048
     Dates: start: 20101228, end: 20111223
  2. AMIODARONE [Concomitant]
     Indication: ATRIAL FIBRILLATION
     Dosage: 200 MG
     Route: 048
  3. ASPIRIN [Concomitant]
     Dosage: 81 MG
     Route: 048
  4. LIPITOR [Concomitant]
     Dosage: 10 MG
     Route: 048
  5. LISINOPRIL [Concomitant]
     Dosage: 20 MG
     Route: 048
  6. CALCIUM [Concomitant]
     Route: 065
  7. CARDIZEM [Concomitant]
     Indication: HEART RATE ABNORMAL
     Dosage: 240 MG
     Route: 065
  8. FISH OIL [Concomitant]
     Route: 065
  9. HYDROCHLOROTHIAZIDE [Concomitant]
     Dosage: 25 MG
     Route: 065
  10. BONIVA [Concomitant]
     Route: 065
  11. MULTIVITAMIN [Concomitant]
     Route: 065

REACTIONS (1)
  - Gastrointestinal haemorrhage [Unknown]
